FAERS Safety Report 4303895-5 (Version None)
Quarter: 2004Q1

REPORT INFORMATION
  Report Type: 
  Country: None (occurrence: None)
  Receive Date: 20040225
  Receipt Date: 20040219
  Transmission Date: 20041129
  Serious: Yes (Other)
  Sender: FDA-Public Use
  Company Number: WAES 0402USA01503

PATIENT
  Age: 75 Year
  Sex: Female

DRUGS (6)
  1. XANAX [Concomitant]
  2. ATENOLOL [Concomitant]
  3. PRINIVIL [Suspect]
     Indication: HYPERTENSION
     Route: 048
  4. PRINIVIL [Suspect]
     Route: 048
  5. PRINIVIL [Suspect]
     Route: 048
  6. ZESTRIL [Concomitant]

REACTIONS (5)
  - INFLAMMATION [None]
  - MEDICATION ERROR [None]
  - NASAL DISCOMFORT [None]
  - NASAL OEDEMA [None]
  - OROPHARYNGEAL SWELLING [None]
